FAERS Safety Report 5481331-3 (Version None)
Quarter: 2007Q4

REPORT INFORMATION
  Report Type: 
  Country: None (occurrence: None)
  Receive Date: 20071010
  Receipt Date: 20070930
  Transmission Date: 20080405
  Serious: Yes (Hospitalization)
  Sender: FDA-Public Use
  Company Number: BR-JNJFOC-20071000497

PATIENT
  Age: 29 Year
  Sex: Female
  Weight: 60 kg

DRUGS (2)
  1. HALDOL [Suspect]
     Indication: DRUG USE FOR UNKNOWN INDICATION
  2. ANTI HIV UNSPECIFIED DRUGS [Concomitant]
     Indication: HIV INFECTION

REACTIONS (4)
  - JOINT STIFFNESS [None]
  - MEDICATION ERROR [None]
  - PARKINSONIAN GAIT [None]
  - TREMOR [None]
